FAERS Safety Report 9707545 (Version 1)
Quarter: 2013Q4

REPORT INFORMATION
  Report Type: Spontaneous
  Country: US (occurrence: US)
  Receive Date: 20131125
  Receipt Date: 20131125
  Transmission Date: 20140711
  Serious: No
  Sender: FDA-Public Use
  Company Number: US-TEVA-375457USA

PATIENT
  Age: 24 Year
  Sex: Female
  Weight: 65.83 kg

DRUGS (2)
  1. PARAGARD 380A [Suspect]
     Indication: CONTRACEPTION
     Route: 015
     Dates: start: 201208, end: 20121211
  2. TOPIRAMATE [Concomitant]
     Indication: CONVULSION
     Dosage: QD
     Route: 048

REACTIONS (3)
  - Menorrhagia [Recovered/Resolved]
  - Menorrhagia [Recovered/Resolved]
  - Abdominal pain lower [Recovered/Resolved]
